FAERS Safety Report 9808227 (Version 1)
Quarter: 2014Q1

REPORT INFORMATION
  Report Type: Spontaneous
  Country: GB (occurrence: GB)
  Receive Date: 20140110
  Receipt Date: 20140110
  Transmission Date: 20141002
  Serious: Yes (Other)
  Sender: FDA-Public Use
  Company Number: GB-MYLANLABS-2014S1000050

PATIENT
  Age: 47 Year
  Sex: Female

DRUGS (1)
  1. OLANZAPINE [Suspect]
     Indication: PRODUCT USED FOR UNKNOWN INDICATION

REACTIONS (6)
  - Drug intolerance [Unknown]
  - Depressed mood [Unknown]
  - Hormone level abnormal [Unknown]
  - Food craving [Unknown]
  - Suicide attempt [Unknown]
  - Incorrect dose administered [Unknown]
